FAERS Safety Report 10382441 (Version 2)
Quarter: 2014Q3

REPORT INFORMATION
  Report Type: Spontaneous
  Country: US (occurrence: None)
  Receive Date: 20140811
  Receipt Date: 20140922
  Transmission Date: 20150326
  Serious: Yes (Hospitalization)
  Sender: FDA-Public Use
  Company Number: 2014US003493

PATIENT
  Age: 63 Year
  Sex: Male

DRUGS (3)
  1. FIORICET (BUTALBITAL, CAFFEINE, PARACETAMOL) [Concomitant]
  2. ICLUSIG [Suspect]
     Active Substance: PONATINIB
     Route: 048
  3. ICLUSIG [Suspect]
     Active Substance: PONATINIB
     Indication: CHRONIC MYELOID LEUKAEMIA
     Route: 048

REACTIONS (12)
  - Haematemesis [None]
  - Dry mouth [None]
  - Decubitus ulcer [None]
  - Arthralgia [None]
  - Sialoadenitis [None]
  - Oedema peripheral [None]
  - Asthenia [None]
  - Dyspnoea [None]
  - Back pain [None]
  - Anaemia [None]
  - Gastric ulcer [None]
  - Weight decreased [None]
